FAERS Safety Report 8264749 (Version 2)
Quarter: 2013Q3

REPORT INFORMATION
  Report Type: Spontaneous
  Country: JP (occurrence: JP)
  Receive Date: 20111128
  Receipt Date: 20130917
  Transmission Date: 20140515
  Serious: Yes (Other)
  Sender: FDA-Public Use
  Company Number: JP-VIIV HEALTHCARE LIMITED-B0764177A

PATIENT
  Age: 38 Year
  Sex: Male

DRUGS (5)
  1. RETROVIR [Suspect]
     Indication: HIV INFECTION
     Dosage: 4IUAX PER DAY
     Route: 048
     Dates: start: 20070712, end: 20080827
  2. EPIVIR [Suspect]
     Indication: HIV INFECTION
     Dosage: 2IUAX PER DAY
     Route: 048
     Dates: start: 20070712, end: 20080827
  3. KALETRA [Suspect]
     Indication: HIV INFECTION
     Dosage: 4IUAX PER DAY
     Route: 048
     Dates: start: 20070301
  4. VIREAD [Suspect]
  5. EMTRIVA [Suspect]

REACTIONS (8)
  - Basedow^s disease [Recovering/Resolving]
  - Anaemia [Unknown]
  - Dizziness [Unknown]
  - Palpitations [Unknown]
  - Tremor [Unknown]
  - Fatigue [Unknown]
  - Hypoaesthesia [Unknown]
  - Weight decreased [Unknown]
